FAERS Safety Report 6545825-1 (Version None)
Quarter: 2010Q1

REPORT INFORMATION
  Report Type: 
  Country: None (occurrence: None)
  Receive Date: 20100121
  Receipt Date: 20100118
  Transmission Date: 20100710
  Serious: Yes (Hospitalization)
  Sender: FDA-Public Use
  Company Number: US-ELI_LILLY_AND_COMPANY-US201001003346

PATIENT
  Sex: Female

DRUGS (2)
  1. HUMULIN N [Suspect]
     Indication: DIABETES MELLITUS
     Dosage: 28 U, EACH MORNING
     Dates: start: 20090401
  2. HUMULIN N [Suspect]
     Dosage: 18 U, EACH EVENING
     Dates: start: 20090401

REACTIONS (18)
  - ARTHRITIS [None]
  - BACK DISORDER [None]
  - BACK PAIN [None]
  - BLOOD GLUCOSE DECREASED [None]
  - BLOOD GLUCOSE INCREASED [None]
  - BREAST PAIN [None]
  - CHRONIC OBSTRUCTIVE PULMONARY DISEASE [None]
  - DRY MOUTH [None]
  - DYSPNOEA [None]
  - INTERVERTEBRAL DISC PROTRUSION [None]
  - MALAISE [None]
  - MUSCULOSKELETAL PAIN [None]
  - NECK PAIN [None]
  - NERVE COMPRESSION [None]
  - NERVOUSNESS [None]
  - PAIN [None]
  - PAIN IN EXTREMITY [None]
  - RENAL DISORDER [None]
